FAERS Safety Report 8400728-2 (Version None)
Quarter: 2012Q2

REPORT INFORMATION
  Report Type: 
  Country: None (occurrence: None)
  Receive Date: 20120531
  Receipt Date: 20120524
  Transmission Date: 20120825
  Serious: Yes (Hospitalization, Other)
  Sender: FDA-Public Use
  Company Number: US-MERCK-1110USA02434

PATIENT
  Age: 70 Year
  Sex: Female
  Weight: 73 kg

DRUGS (10)
  1. NIFEDINE [Concomitant]
     Route: 065
  2. VITAMINS (UNSPECIFIED) [Concomitant]
     Route: 065
     Dates: start: 19700101
  3. BONIVA [Suspect]
     Indication: OSTEOPENIA
     Route: 048
     Dates: start: 20080101, end: 20101101
  4. MORPHINE [Concomitant]
     Indication: CROHN'S DISEASE
     Route: 065
  5. ATENOLOL [Concomitant]
     Route: 065
  6. PAXIL [Concomitant]
     Indication: DEPRESSION
     Route: 065
  7. FOSAMAX [Suspect]
     Indication: OSTEOPENIA
     Route: 048
     Dates: start: 20010201, end: 20080301
  8. DOVONEX [Concomitant]
     Route: 061
     Dates: start: 20021118
  9. DIPROLENE AF [Concomitant]
     Route: 065
  10. ASPIRIN [Concomitant]
     Route: 065

REACTIONS (25)
  - ANAEMIA [None]
  - OSTEOARTHRITIS [None]
  - UTERINE DISORDER [None]
  - CONSTIPATION [None]
  - DIZZINESS [None]
  - FEMUR FRACTURE [None]
  - FEMORAL NECK FRACTURE [None]
  - SPINAL OSTEOARTHRITIS [None]
  - RENAL FAILURE CHRONIC [None]
  - HEPATIC ENZYME INCREASED [None]
  - INSOMNIA [None]
  - HAEMATURIA [None]
  - URINARY TRACT INFECTION [None]
  - LOW TURNOVER OSTEOPATHY [None]
  - ANXIETY [None]
  - HYPERTENSION [None]
  - SCIATICA [None]
  - CORONARY ARTERY STENOSIS [None]
  - RENAL CYST [None]
  - OSTEOPOROSIS [None]
  - HYPERCHOLESTEROLAEMIA [None]
  - UPPER RESPIRATORY TRACT INFECTION [None]
  - LUNG HYPERINFLATION [None]
  - LIMB ASYMMETRY [None]
  - ARTHRITIS [None]
